FAERS Safety Report 9645581 (Version 2)
Quarter: 2013Q4

REPORT INFORMATION
  Report Type: Report from Study
  Country: IT (occurrence: IT)
  Receive Date: 20131025
  Receipt Date: 20131213
  Transmission Date: 20140711
  Serious: Yes (Hospitalization)
  Sender: FDA-Public Use
  Company Number: IT-TEVA-440155USA

PATIENT
  Age: 71 Year
  Sex: Male

DRUGS (9)
  1. TREANDA [Suspect]
     Indication: PRODUCT USED FOR UNKNOWN INDICATION
     Dosage: UNKNOWN/D
     Route: 042
     Dates: start: 20131002, end: 20131003
  2. CYTARABINE [Concomitant]
     Dosage: DAY 1 TO 3.
  3. DEXAMETHASONE [Concomitant]
     Dosage: DAY 1 TO 4
  4. ATENOLOL [Concomitant]
  5. DARBEPOETIN ALFA [Concomitant]
  6. SULFAMETHOXAZOLE/TRIMETHOPRIM [Concomitant]
  7. FLECAINIDE [Concomitant]
  8. LANSOPRAZOLE [Concomitant]
  9. NADROPARIN CALCIUM [Concomitant]

REACTIONS (1)
  - Atrial fibrillation [Recovered/Resolved]
